FAERS Safety Report 25331646 (Version 2)
Quarter: 2025Q3

REPORT INFORMATION
  Report Type: Spontaneous
  Country: IN (occurrence: IN)
  Receive Date: 20250519
  Receipt Date: 20250716
  Transmission Date: 20251020
  Serious: Yes (Death, Life-Threatening)
  Sender: PFIZER
  Company Number: IN-PFIZER INC-PV202200068547

PATIENT
  Age: 61 Year
  Sex: Female

DRUGS (4)
  1. CRIZOTINIB [Suspect]
     Active Substance: CRIZOTINIB
     Indication: Breast cancer female
     Dosage: 250 MG, 1X/DAY (FOR 4 MONTHS)
     Route: 048
     Dates: start: 201801, end: 202411
  2. CRIZOTINIB [Suspect]
     Active Substance: CRIZOTINIB
     Indication: Lung neoplasm malignant
  3. CRIZOTINIB [Suspect]
     Active Substance: CRIZOTINIB
     Indication: Adenocarcinoma
  4. LORLATINIB [Suspect]
     Active Substance: LORLATINIB
     Dosage: 100 MG, 1X/DAY
     Route: 048
     Dates: start: 20180301

REACTIONS (6)
  - Death [Fatal]
  - Myocardial infarction [Unknown]
  - Pyrexia [Recovered/Resolved]
  - Cough [Recovered/Resolved]
  - Vomiting [Unknown]
  - Blood creatinine increased [Unknown]

NARRATIVE: CASE EVENT DATE: 20240101
